FAERS Safety Report 5256812-8 (Version None)
Quarter: 2007Q1

REPORT INFORMATION
  Report Type: 
  Country: None (occurrence: None)
  Receive Date: 20070306
  Receipt Date: 20070227
  Transmission Date: 20070707
  Serious: Yes (Death)
  Sender: FDA-Public Use
  Company Number: AU-BOEHRINGER INGELHEIM PHARMACEUTICALS, INC.-2007-DE-01216GD

PATIENT

DRUGS (3)
  1. NEVIRAPINE [Suspect]
     Indication: HIV INFECTION
  2. STAVUDINE [Suspect]
     Indication: HIV INFECTION
  3. LAMIVUDINE [Suspect]
     Indication: HIV INFECTION

REACTIONS (16)
  - ACQUIRED IMMUNODEFICIENCY SYNDROME [None]
  - CRYPTOCOCCOSIS [None]
  - CYTOMEGALOVIRUS CHORIORETINITIS [None]
  - DEATH [None]
  - HEPATITIS [None]
  - HIV INFECTION [None]
  - LACTIC ACIDOSIS [None]
  - LIPODYSTROPHY ACQUIRED [None]
  - NAUSEA [None]
  - NEUROPATHY PERIPHERAL [None]
  - PANCREATITIS [None]
  - PYREXIA [None]
  - RASH [None]
  - TOXOPLASMOSIS [None]
  - TUBERCULOSIS [None]
  - VOMITING [None]
